FAERS Safety Report 14605091 (Version 4)
Quarter: 2018Q3

REPORT INFORMATION
  Report Type: Report from Study
  Country: BR (occurrence: BR)
  Receive Date: 20180306
  Receipt Date: 20180723
  Transmission Date: 20181010
  Serious: Yes (Death, Hospitalization, Other)
  Sender: FDA-Public Use
  Company Number: BR-BAYER-2018-038035

PATIENT
  Age: 61 Year
  Sex: Male

DRUGS (2)
  1. OMEPRAZOLE. [Concomitant]
     Active Substance: OMEPRAZOLE
     Indication: PROPHYLAXIS
     Dosage: UNK
  2. NEXAVAR [Suspect]
     Active Substance: SORAFENIB
     Indication: HEPATOCELLULAR CARCINOMA
     Dosage: 2 DF, BID
     Route: 048
     Dates: start: 20180219, end: 20180507

REACTIONS (33)
  - Weight decreased [None]
  - Dysgeusia [Not Recovered/Not Resolved]
  - Nausea [Not Recovered/Not Resolved]
  - Fatigue [Not Recovered/Not Resolved]
  - Peripheral swelling [Not Recovered/Not Resolved]
  - Blood pressure decreased [Not Recovered/Not Resolved]
  - Blood pressure increased [Recovering/Resolving]
  - Decreased appetite [Not Recovered/Not Resolved]
  - Dehydration [Recovering/Resolving]
  - Abdominal discomfort [Not Recovered/Not Resolved]
  - General physical health deterioration [None]
  - Vomiting [Recovered/Resolved]
  - Hepatitis C [Fatal]
  - Pain [Not Recovered/Not Resolved]
  - Dyspnoea [Not Recovered/Not Resolved]
  - Abdominal distension [None]
  - Pulmonary mass [Fatal]
  - Dyspnoea [Not Recovered/Not Resolved]
  - Pleural effusion [None]
  - Haematemesis [Recovered/Resolved]
  - Vomiting [Recovered/Resolved]
  - Dysphonia [Not Recovered/Not Resolved]
  - Constipation [Not Recovered/Not Resolved]
  - Oedema peripheral [Not Recovered/Not Resolved]
  - Hepatocellular carcinoma [Fatal]
  - Gait disturbance [None]
  - Abdominal pain [Recovered/Resolved]
  - Dysphagia [Recovering/Resolving]
  - Drug ineffective [None]
  - Asthenia [None]
  - Respiratory failure [Fatal]
  - Metastases to pleura [None]
  - Pyrexia [Recovering/Resolving]

NARRATIVE: CASE EVENT DATE: 20180223
